FAERS Safety Report 17208533 (Version 1)
Quarter: 2019Q4

REPORT INFORMATION
  Report Type: Spontaneous
  Country: DE (occurrence: DE)
  Receive Date: 20191227
  Receipt Date: 20191227
  Transmission Date: 20200122
  Serious: Yes (Death)
  Sender: FDA-Public Use
  Company Number: DE-MYLANLABS-2019M1129963

PATIENT
  Age: 46 Year
  Sex: Female
  Weight: 150 kg

DRUGS (9)
  1. METFORMIN [Concomitant]
     Active Substance: METFORMIN HYDROCHLORIDE
     Indication: TYPE 2 DIABETES MELLITUS
     Dosage: 2000 MILLIGRAM
     Route: 048
  2. BISOPROLOL [Concomitant]
     Active Substance: BISOPROLOL
     Indication: HYPERTENSION
     Dosage: 7.5 MILLIGRAM, QD
     Route: 048
  3. NOVAMIN                            /06276704/ [Suspect]
     Active Substance: METAMIZOLE SODIUM
     Indication: ANALGESIC THERAPY
     Dosage: 500 MILLIGRAM, QD
     Route: 048
  4. SYMBICORT [Concomitant]
     Active Substance: BUDESONIDE\FORMOTEROL FUMARATE DIHYDRATE
     Dosage: UNK,1-0-1
  5. PREDNISOLON                        /00016201/ [Concomitant]
     Active Substance: PREDNISOLONE
     Indication: PSORIATIC ARTHROPATHY
     Dosage: DAILY DOSE: 10 MG MILLGRAM(S) EVERY DAYS
     Route: 048
  6. FOLSAEURE [Concomitant]
     Active Substance: FOLIC ACID
     Dosage: EINNAHME IMMER SONNTAGS 24H NACH MTX EINNAHME
     Route: 048
  7. AMLODIPIN                          /00972401/ [Concomitant]
     Active Substance: AMLODIPINE BESYLATE
     Indication: HYPERTENSION
     Dosage: DAILY DOSE: 10 MG MILLGRAM(S) EVERY DAYS
     Route: 048
  8. METHOTREXATE. [Suspect]
     Active Substance: METHOTREXATE
     Indication: PSORIATIC ARTHROPATHY
     Dosage: 15 MILLIGRAM, QW
     Route: 048
  9. TRAMAL [Concomitant]
     Active Substance: TRAMADOL
     Indication: ANALGESIC THERAPY
     Dosage: 300 MILLIGRAM, QD
     Route: 048

REACTIONS (4)
  - Stomatitis [Fatal]
  - Erysipelas [Fatal]
  - Diarrhoea [Fatal]
  - Pancytopenia [Fatal]

NARRATIVE: CASE EVENT DATE: 201806
